FAERS Safety Report 26122356 (Version 1)
Quarter: 2025Q4

REPORT INFORMATION
  Report Type: Spontaneous
  Country: BR (occurrence: BR)
  Receive Date: 20251204
  Receipt Date: 20251204
  Transmission Date: 20260117
  Serious: Yes (Other)
  Sender: ELI LILLY AND COMPANY
  Company Number: BR-ELI_LILLY_AND_COMPANY-BR202511029735

PATIENT
  Sex: Male

DRUGS (4)
  1. MOUNJARO [Suspect]
     Active Substance: TIRZEPATIDE
     Indication: Product used for unknown indication
     Dosage: 2.5 MG, UNKNOWN
     Route: 065
     Dates: start: 20251115
  2. MOUNJARO [Suspect]
     Active Substance: TIRZEPATIDE
     Indication: Product used for unknown indication
     Dosage: 2.5 MG, UNKNOWN
     Route: 065
     Dates: start: 20251115
  3. MOUNJARO [Suspect]
     Active Substance: TIRZEPATIDE
     Indication: Product used for unknown indication
     Dosage: 2.5 MG, UNKNOWN
     Route: 065
     Dates: start: 20251115
  4. MOUNJARO [Suspect]
     Active Substance: TIRZEPATIDE
     Indication: Product used for unknown indication
     Dosage: 2.5 MG, UNKNOWN
     Route: 065
     Dates: start: 20251115

REACTIONS (24)
  - Dehydration [Recovering/Resolving]
  - Weight decreased [Recovering/Resolving]
  - Renal disorder [Recovering/Resolving]
  - Urine output decreased [Recovering/Resolving]
  - Pain [Recovering/Resolving]
  - Anxiety [Recovering/Resolving]
  - Feeling of despair [Recovering/Resolving]
  - Headache [Recovering/Resolving]
  - Irritability [Recovering/Resolving]
  - Photophobia [Recovering/Resolving]
  - Parosmia [Recovering/Resolving]
  - Hyperacusis [Recovering/Resolving]
  - Feeding disorder [Recovering/Resolving]
  - Vomiting [Recovering/Resolving]
  - Abdominal pain upper [Recovered/Resolved]
  - Diarrhoea [Recovered/Resolved]
  - Fatigue [Recovering/Resolving]
  - Malnutrition [Recovering/Resolving]
  - Nausea [Recovering/Resolving]
  - Asthenia [Recovering/Resolving]
  - Eructation [Recovering/Resolving]
  - Gastrooesophageal reflux disease [Recovering/Resolving]
  - Frequent bowel movements [Recovering/Resolving]
  - Abdominal discomfort [Recovering/Resolving]

NARRATIVE: CASE EVENT DATE: 20251117
